FAERS Safety Report 12620782 (Version 1)
Quarter: 2016Q3

REPORT INFORMATION
  Report Type: Spontaneous
  Country: US (occurrence: US)
  Receive Date: 20160804
  Receipt Date: 20160804
  Transmission Date: 20161109
  Serious: Yes (Other)
  Sender: FDA-Public Use
  Company Number: US-RECORDATI RARE DISEASES-US-R13005-16-00112

PATIENT
  Age: 90 Year
  Sex: Female

DRUGS (2)
  1. TRANXENE T-TAB [Suspect]
     Active Substance: CLORAZEPATE DIPOTASSIUM
     Indication: BLADDER SPASM
     Dosage: ONE AND HALF OR ONE AND QUARTER OF THE 3.75 MG TABLET, BASED ON HOW SHE FEELS THAT DAY
     Route: 065
  2. TRANXENE T-TAB [Suspect]
     Active Substance: CLORAZEPATE DIPOTASSIUM
     Indication: CONGENITAL URETHRAL ANOMALY
     Route: 065

REACTIONS (3)
  - Mental impairment [Unknown]
  - Somnolence [Unknown]
  - Off label use [Unknown]
